FAERS Safety Report 10895981 (Version 1)
Quarter: 2015Q1

REPORT INFORMATION
  Report Type: Spontaneous
  Country: US (occurrence: US)
  Receive Date: 20150308
  Receipt Date: 20150308
  Transmission Date: 20150721
  Serious: Yes (Hospitalization, Other)
  Sender: FDA-Public Use
  Company Number: PHEH2015US004172

PATIENT
  Age: 73 Year
  Sex: Male

DRUGS (4)
  1. TOBRAMYCIN. [Suspect]
     Active Substance: TOBRAMYCIN
     Indication: PRODUCT USED FOR UNKNOWN INDICATION
     Route: 055
  2. PROLIA [Suspect]
     Active Substance: DENOSUMAB
     Indication: OSTEOPOROSIS
     Dosage: UNK
     Route: 065
     Dates: start: 201412
  3. ENBREL [Suspect]
     Active Substance: ETANERCEPT
     Indication: RHEUMATOID ARTHRITIS
     Dosage: UNK
     Route: 065
  4. HYDROXYCHLOROQUINE [Concomitant]
     Active Substance: HYDROXYCHLOROQUINE
     Indication: RHEUMATOID ARTHRITIS
     Route: 065

REACTIONS (12)
  - Bacterial infection [Unknown]
  - Pain in extremity [Unknown]
  - Bronchospasm [Unknown]
  - Pain [Unknown]
  - Foot deformity [Unknown]
  - Lung infection [Unknown]
  - White blood cell count increased [Unknown]
  - Dyspnoea [Unknown]
  - Localised infection [Unknown]
  - Chest discomfort [Unknown]
  - Infection [Unknown]
  - Hand deformity [Unknown]

NARRATIVE: CASE EVENT DATE: 201412
